FAERS Safety Report 8152543-5 (Version None)
Quarter: 2012Q1

REPORT INFORMATION
  Report Type: 
  Country: None (occurrence: None)
  Receive Date: 20120221
  Receipt Date: 20120210
  Transmission Date: 20120608
  Serious: Yes (Hospitalization)
  Sender: FDA-Public Use
  Company Number: US-BRISTOL-MYERS SQUIBB COMPANY-16368987

PATIENT
  Age: 66 Year
  Sex: Male

DRUGS (2)
  1. XELODA [Suspect]
     Indication: HEAD AND NECK CANCER
     Dosage: BID X 14DAYS FOLLOWED BY 7DAYS REST
     Dates: start: 20120101
  2. ERBITUX [Suspect]
     Indication: HEAD AND NECK CANCER
     Dosage: LAST INF:30DEC11
     Route: 042
     Dates: start: 20111216

REACTIONS (1)
  - ARTERIOSPASM CORONARY [None]
